FAERS Safety Report 8485202-X (Version None)
Quarter: 2012Q3

REPORT INFORMATION
  Report Type: 
  Country: None (occurrence: None)
  Receive Date: 20120703
  Receipt Date: 20120626
  Transmission Date: 20120928
  Serious: Yes (Other)
  Sender: FDA-Public Use
  Company Number: BR-US-EMD SERONO, INC.-7013015

PATIENT
  Sex: Female

DRUGS (1)
  1. REBIF [Suspect]
     Indication: RELAPSING-REMITTING MULTIPLE SCLEROSIS
     Route: 058
     Dates: start: 20060706

REACTIONS (4)
  - FATIGUE [None]
  - HEADACHE [None]
  - URINARY TRACT INFECTION BACTERIAL [None]
  - INJECTION SITE ERYTHEMA [None]
